FAERS Safety Report 5212878-2 (Version None)
Quarter: 2007Q1

REPORT INFORMATION
  Report Type: 
  Country: None (occurrence: None)
  Receive Date: 20070119
  Receipt Date: 20070111
  Transmission Date: 20070707
  Serious: Yes (Other)
  Sender: FDA-Public Use
  Company Number: PHNU2007DE00506

PATIENT
  Sex: Female

DRUGS (3)
  1. IMMUNOSPORIN [Suspect]
     Indication: PSORIATIC ARTHROPATHY
     Dosage: 100 MG, BID
     Route: 048
     Dates: start: 20051001
  2. IBUFLAM [Suspect]
  3. DIFFERENT CONCOMITANT MEDICATIONS (UNSPECIFIED) [Concomitant]

REACTIONS (2)
  - BLOOD ALKALINE PHOSPHATASE INCREASED [None]
  - PSORIASIS [None]
